FAERS Safety Report 4345753-6 (Version None)
Quarter: 2004Q2

REPORT INFORMATION
  Report Type: 
  Country: None (occurrence: None)
  Receive Date: 20040421
  Receipt Date: 20040408
  Transmission Date: 20050107
  Serious: Yes (Life-Threatening, Hospitalization, Disabling)
  Sender: FDA-Public Use
  Company Number: 2004AP00422

PATIENT
  Age: 54 Year
  Sex: Female

DRUGS (13)
  1. IRESSA [Suspect]
     Indication: LUNG ADENOCARCINOMA
     Dosage: 250 MG DAILY PO
     Route: 048
     Dates: start: 20031104, end: 20031230
  2. IRESSA [Suspect]
     Indication: NON-SMALL CELL LUNG CANCER
     Dosage: 250 MG DAILY PO
     Route: 048
     Dates: start: 20031104, end: 20031230
  3. DECADRON [Suspect]
     Indication: BRAIN CANCER METASTATIC
     Dosage: 2 MG DAILY PO
     Route: 048
     Dates: start: 20031030, end: 20031230
  4. DECADRON [Suspect]
     Indication: INTRACRANIAL PRESSURE INCREASED
     Dosage: 2 MG DAILY PO
     Route: 048
     Dates: start: 20031030, end: 20031230
  5. DEPAKENE [Suspect]
     Dosage: 400 MG DAILY PO
     Route: 048
     Dates: start: 20031030, end: 20031204
  6. GLYCEOL [Concomitant]
  7. MS CONTIN [Concomitant]
  8. LAXOBERON [Concomitant]
  9. MAGNESIUM OXIDE [Concomitant]
  10. PROMAC [Concomitant]
  11. PHENOBAL [Concomitant]
  12. MODACIN [Concomitant]
  13. RADIOTHERAPY [Concomitant]

REACTIONS (17)
  - ALANINE AMINOTRANSFERASE INCREASED [None]
  - ANAL FISSURE [None]
  - ANAL FISTULA [None]
  - ASPARTATE AMINOTRANSFERASE INCREASED [None]
  - BLOOD CREATININE INCREASED [None]
  - BLOOD UREA INCREASED [None]
  - C-REACTIVE PROTEIN INCREASED [None]
  - CONDITION AGGRAVATED [None]
  - DEHYDRATION [None]
  - GAMMA-GLUTAMYLTRANSFERASE INCREASED [None]
  - HYPOALBUMINAEMIA [None]
  - IMPAIRED HEALING [None]
  - LUNG ADENOCARCINOMA [None]
  - MARKEDLY REDUCED DIETARY INTAKE [None]
  - PERIANAL ABSCESS [None]
  - PULMONARY OEDEMA [None]
  - URINARY TRACT INFECTION [None]
